FAERS Safety Report 13512568 (Version 1)
Quarter: 2017Q2

REPORT INFORMATION
  Report Type: Spontaneous
  Country: US (occurrence: US)
  Receive Date: 20170504
  Receipt Date: 20170504
  Transmission Date: 20170830
  Serious: No
  Sender: FDA-Public Use
  Company Number: None

PATIENT
  Age: 67 Year
  Sex: Female
  Weight: 82.17 kg

DRUGS (11)
  1. VITAMIN D3 [Concomitant]
     Active Substance: CHOLECALCIFEROL
  2. VAGINAL CREAM [Concomitant]
  3. BILLBERRY [Concomitant]
  4. TYLENOL [Concomitant]
     Active Substance: ACETAMINOPHEN
  5. VITAMIN E [Concomitant]
     Active Substance: .ALPHA.-TOCOPHEROL
  6. RED RICE YEAST [Concomitant]
     Active Substance: DIETARY SUPPLEMENT
  7. (ORAL CALCIUM W/CQ10 [Concomitant]
  8. BUSPAR [Concomitant]
     Active Substance: BUSPIRONE HYDROCHLORIDE
  9. VENLAFAXINE ER (EFFEXOR XR) [Concomitant]
  10. BACTRIM DS [Suspect]
     Active Substance: SULFAMETHOXAZOLE\TRIMETHOPRIM
     Indication: KIDNEY INFECTION
     Dosage: 160-800MG TAB 14 PILLS FOR WEEK 1 TAB 2X ADAY BY MOUTH
     Route: 048
     Dates: start: 20170410, end: 20170413
  11. ALLEGRA [Concomitant]
     Active Substance: FEXOFENADINE HYDROCHLORIDE

REACTIONS (22)
  - Erythema [None]
  - Oropharyngeal pain [None]
  - Hypophagia [None]
  - Swelling face [None]
  - Nausea [None]
  - Dehydration [None]
  - Pyrexia [None]
  - Hypoaesthesia [None]
  - Aphthous ulcer [None]
  - Dyspnoea [None]
  - Arthralgia [None]
  - Oral mucosal blistering [None]
  - Rash [None]
  - Mass [None]
  - Skin burning sensation [None]
  - Muscular weakness [None]
  - Oral pain [None]
  - Speech disorder [None]
  - Intranasal hypoaesthesia [None]
  - Hypoaesthesia oral [None]
  - Dizziness [None]
  - Dry skin [None]

NARRATIVE: CASE EVENT DATE: 20170410
